FAERS Safety Report 10537437 (Version 2)
Quarter: 2014Q4

REPORT INFORMATION
  Report Type: Spontaneous
  Country: US (occurrence: US)
  Receive Date: 20141023
  Receipt Date: 20141023
  Transmission Date: 20150529
  Serious: Yes (Other)
  Sender: FDA-Public Use
  Company Number: US-UNITED THERAPEUTICS-UNT-2014-001254

PATIENT
  Age: 39 Year
  Sex: Female
  Weight: 77.98 kg

DRUGS (5)
  1. REMODULIN [Suspect]
     Active Substance: TREPROSTINIL
     Dosage: 0.079 ?G/KG, CONTINUING
     Route: 058
     Dates: start: 20110627, end: 20140518
  2. ADCIRCA [Concomitant]
     Active Substance: TADALAFIL
     Indication: PRODUCT USED FOR UNKNOWN INDICATION
     Route: 065
  3. REMODULIN [Suspect]
     Active Substance: TREPROSTINIL
     Indication: COR PULMONALE CHRONIC
     Dosage: 0.035 ML/HR, CONTINUING
     Route: 058
     Dates: start: 20140522
  4. LETAIRIS [Concomitant]
     Active Substance: AMBRISENTAN
     Indication: PRODUCT USED FOR UNKNOWN INDICATION
     Route: 065
  5. REMODULIN [Suspect]
     Active Substance: TREPROSTINIL
     Dosage: UNK
     Dates: start: 2014

REACTIONS (7)
  - Insomnia [Recovering/Resolving]
  - Nasal abscess [Unknown]
  - Drug dose omission [Recovering/Resolving]
  - Discomfort [Recovering/Resolving]
  - Restlessness [Recovering/Resolving]
  - Device malfunction [Recovered/Resolved]
  - Device dislocation [Unknown]

NARRATIVE: CASE EVENT DATE: 2014
